FAERS Safety Report 9431958 (Version 2)
Quarter: 2013Q3

REPORT INFORMATION
  Report Type: Spontaneous
  Country: JP (occurrence: JP)
  Receive Date: 20130731
  Receipt Date: 20130814
  Transmission Date: 20140515
  Serious: Yes (Other)
  Sender: FDA-Public Use
  Company Number: JP-BRISTOL-MYERS SQUIBB COMPANY-19152396

PATIENT
  Age: 67 Year
  Sex: Male

DRUGS (16)
  1. METGLUCO [Suspect]
     Indication: TYPE 2 DIABETES MELLITUS
     Dosage: MAY-JUN13:250MG TWICE DAILY:1MONTH?20JUN-10JUL13:750MG PER DAY:21D?12-19JUN13-8D
     Route: 048
     Dates: start: 201305, end: 20130711
  2. ALFAROL [Concomitant]
     Route: 048
     Dates: start: 20130620
  3. CILNIDIPINE [Concomitant]
     Route: 048
     Dates: start: 20130620
  4. GASMOTIN [Concomitant]
     Route: 048
     Dates: start: 20130620, end: 20130710
  5. VILDAGLIPTIN [Concomitant]
     Dates: start: 20130612, end: 20130619
  6. MIGLITOL [Concomitant]
     Dates: start: 20130616, end: 20130619
  7. OLMETEC [Concomitant]
     Indication: HYPERTENSION
     Dates: end: 20130619
  8. VOGLIBOSE [Concomitant]
     Route: 048
     Dates: start: 20130620, end: 20130710
  9. FOSAMAC [Concomitant]
     Route: 048
     Dates: start: 20130620, end: 20130710
  10. PROMAC [Concomitant]
     Route: 048
     Dates: start: 20130620, end: 20130710
  11. MECOBALAMIN [Concomitant]
     Route: 048
     Dates: start: 20130620, end: 20130710
  12. FOLIC ACID [Concomitant]
     Route: 048
     Dates: start: 20130620, end: 20130710
  13. ACTOS [Concomitant]
     Route: 048
     Dates: start: 20130620
  14. GASCON [Concomitant]
     Route: 048
     Dates: start: 20130711
  15. AMARYL [Concomitant]
     Route: 048
     Dates: start: 20130711
  16. GLUCOBAY [Concomitant]
     Route: 048
     Dates: start: 20130711

REACTIONS (2)
  - Platelet count decreased [Not Recovered/Not Resolved]
  - Anaemia [Unknown]
